FAERS Safety Report 6087527-4 (Version None)
Quarter: 2009Q1

REPORT INFORMATION
  Report Type: 
  Country: None (occurrence: None)
  Receive Date: 20090218
  Receipt Date: 20090218
  Transmission Date: 20090719
  Serious: Yes (Other)
  Sender: FDA-Public Use
  Company Number: None

PATIENT
  Age: 44 Year
  Sex: Male
  Weight: 91.6266 kg

DRUGS (1)
  1. KEPPRA [Suspect]
     Indication: CONVULSION
     Dosage: 100MG BID PO
     Route: 048
     Dates: start: 20081218, end: 20090107

REACTIONS (4)
  - AGGRESSION [None]
  - HOSTILITY [None]
  - SUICIDAL BEHAVIOUR [None]
  - SUICIDAL IDEATION [None]
